FAERS Safety Report 8605506-7 (Version None)
Quarter: 2012Q3

REPORT INFORMATION
  Report Type: 
  Country: None (occurrence: None)
  Receive Date: 20120820
  Receipt Date: 20120808
  Transmission Date: 20120928
  Serious: Yes (Hospitalization)
  Sender: FDA-Public Use
  Company Number: CH-TEVA-353352ISR

PATIENT
  Age: 74 Year
  Sex: Male

DRUGS (14)
  1. NOPIL FORTE [Suspect]
     Indication: PERIPROSTHETIC FRACTURE
  2. CRESTOR [Concomitant]
     Dosage: 20 MILLIGRAM DAILY;
     Route: 048
  3. PANTOPRAZOLE [Concomitant]
     Dosage: 40 MILLIGRAM DAILY;
     Route: 048
  4. VITAMIN D [Concomitant]
     Route: 048
  5. TORSEMIDE [Suspect]
     Indication: HYPERTENSION
     Dosage: 5 MILLIGRAM DAILY;
     Route: 048
     Dates: end: 20120628
  6. ASPIRIN [Concomitant]
     Dosage: 100 MILLIGRAM DAILY;
     Route: 048
  7. CITALOPRAM HYDROBROMIDE [Concomitant]
     Dosage: 20 MILLIGRAM DAILY;
     Route: 048
  8. DALMADORM [Suspect]
     Dosage: 30 MILLIGRAM DAILY;
     Route: 048
  9. TAMSULOSIN HCL [Concomitant]
     Dosage: 400 MICROGRAM DAILY;
     Route: 048
     Dates: start: 20060601
  10. METOPROLOL TARTRATE [Concomitant]
     Dosage: 25 MILLIGRAM DAILY;
     Route: 048
  11. COSOPT [Concomitant]
     Dosage: 4 GTT DAILY;
     Route: 047
  12. ALLOPURINOL [Concomitant]
     Dosage: 100 MILLIGRAM DAILY;
     Route: 048
  13. NOPIL FORTE [Suspect]
     Indication: STAPHYLOCOCCAL INFECTION
     Dosage: 6 DOSAGE FORMS DAILY; 800 MG SMZ/ 160 MG TM TABLETS
     Route: 048
     Dates: start: 20120327
  14. ACETAMINOPHEN [Concomitant]
     Dosage: 1500 MILLIGRAM DAILY;
     Route: 048
     Dates: end: 20120601

REACTIONS (7)
  - FALL [None]
  - HYPONATRAEMIA [None]
  - HYPOTENSION [None]
  - MUSCULAR WEAKNESS [None]
  - HYPERKALAEMIA [None]
  - RENAL FAILURE ACUTE [None]
  - MEDICATION ERROR [None]
